FAERS Safety Report 8765664 (Version 2)
Quarter: 2012Q4

REPORT INFORMATION
  Report Type: 
  Country: FR (occurrence: FR)
  Receive Date: 20120903
  Receipt Date: 20120916
  Transmission Date: 20130627
  Serious: Yes (Hospitalization, Other)
  Sender: FDA-Public Use
  Company Number: PHHY2012FR075272

PATIENT
  Age: 49 Year
  Sex: Female
  Weight: 63 kg

DRUGS (4)
  1. GILENYA [Suspect]
     Indication: MULTIPLE SCLEROSIS
     Dosage: 0.5 mg, QD
     Route: 048
     Dates: start: 20120712
  2. LEVOTHYROX [Concomitant]
     Dosage: 125 ug, UNK
     Dates: start: 1999
  3. DANTRIUM [Concomitant]
     Dosage: 25 mg, BID
     Dates: start: 2006
  4. ACTONEL [Concomitant]
     Dosage: 35 mg, BID
     Dates: start: 2007

REACTIONS (4)
  - Subcutaneous abscess [Recovered/Resolved]
  - Leukopenia [Unknown]
  - Gamma-glutamyltransferase increased [Unknown]
  - Platelet count decreased [None]
